FAERS Safety Report 7203183-3 (Version None)
Quarter: 2010Q4

REPORT INFORMATION
  Report Type: 
  Country: None (occurrence: None)
  Receive Date: 20101230
  Receipt Date: 20101221
  Transmission Date: 20110411
  Serious: Yes (Other)
  Sender: FDA-Public Use
  Company Number: US-BIOGENIDEC-2010BI043277

PATIENT
  Sex: Female

DRUGS (4)
  1. TYSABRI [Suspect]
     Indication: MULTIPLE SCLEROSIS
     Route: 042
     Dates: start: 20090630, end: 20101209
  2. AVONEX [Concomitant]
     Indication: MULTIPLE SCLEROSIS
     Route: 030
  3. TEMAZEPAM [Concomitant]
  4. VALIUM [Concomitant]

REACTIONS (1)
  - DEMENTIA [None]
